FAERS Safety Report 15990305 (Version 1)
Quarter: 2019Q1

REPORT INFORMATION
  Report Type: Spontaneous
  Country: US (occurrence: US)
  Receive Date: 20190221
  Receipt Date: 20190221
  Transmission Date: 20190418
  Serious: No
  Sender: FDA-Public Use
  Company Number: None

PATIENT
  Age: 68 Year
  Sex: Male

DRUGS (22)
  1. FOLIC ACID. [Concomitant]
     Active Substance: FOLIC ACID
  2. WELLBUTRIN [Concomitant]
     Active Substance: BUPROPION HYDROCHLORIDE
  3. AMLODIPINE [Concomitant]
     Active Substance: AMLODIPINE BESYLATE
  4. DIAZEPAM. [Concomitant]
     Active Substance: DIAZEPAM
  5. DIAZEPAM. [Concomitant]
     Active Substance: DIAZEPAM
  6. OMPERAZOLE [Concomitant]
     Active Substance: OMEPRAZOLE
  7. METOPROLOL. [Concomitant]
     Active Substance: METOPROLOL
  8. CABOMETYX [Suspect]
     Active Substance: CABOZANTINIB S-MALATE
     Indication: RENAL CELL CARCINOMA
     Dosage: ?          OTHER FREQUENCY:20MG AND 40MG QOD;?
     Route: 048
     Dates: start: 20180308
  9. CORNZYME Q10 [Concomitant]
  10. PROBIOTIC [Concomitant]
     Active Substance: PROBIOTICS NOS
  11. ATORVASTATIN [Concomitant]
     Active Substance: ATORVASTATIN
  12. BUT/APAP/CAF [Concomitant]
  13. RAMIPRIL. [Concomitant]
     Active Substance: RAMIPRIL
  14. BUPROPION. [Concomitant]
     Active Substance: BUPROPION
  15. PILOCARPINE. [Concomitant]
     Active Substance: PILOCARPINE
  16. PRILOSEC [Concomitant]
     Active Substance: OMEPRAZOLE MAGNESIUM
  17. TOPIRAMATE. [Concomitant]
     Active Substance: TOPIRAMATE
  18. FLUTICASONE. [Concomitant]
     Active Substance: FLUTICASONE
  19. LORAZEPAM. [Concomitant]
     Active Substance: LORAZEPAM
  20. LIPITOR [Concomitant]
     Active Substance: ATORVASTATIN CALCIUM
  21. OXYCODONE [Concomitant]
     Active Substance: OXYCODONE
  22. SERTRALINE [Concomitant]
     Active Substance: SERTRALINE HYDROCHLORIDE

REACTIONS (5)
  - Diarrhoea [None]
  - Stomatitis [None]
  - Pain in extremity [None]
  - Headache [None]
  - Nausea [None]

NARRATIVE: CASE EVENT DATE: 20190220
